FAERS Safety Report 4724752-6 (Version None)
Quarter: 2005Q3

REPORT INFORMATION
  Report Type: 
  Country: None (occurrence: None)
  Receive Date: 20050726
  Receipt Date: 20040527
  Transmission Date: 20060218
  Serious: Yes (Other)
  Sender: FDA-Public Use
  Company Number: JP-GLAXOSMITHKLINE-B0333968A

PATIENT
  Age: 8 Year
  Sex: Male
  Weight: 19 kg

DRUGS (20)
  1. ALKERAN [Suspect]
     Route: 042
     Dates: start: 20020913, end: 20020915
  2. PIRARUBICIN HYDROCHLORIDE [Suspect]
  3. CYCLOPHOSPHAMIDE [Suspect]
     Route: 065
  4. IFOSFAMIDE [Suspect]
     Route: 042
  5. NEUTROGIN [Concomitant]
     Dates: start: 20020920, end: 20021005
  6. PENTCILLIN [Concomitant]
     Dates: start: 20020919, end: 20020921
  7. DIFLUCAN [Concomitant]
     Route: 042
     Dates: start: 20020921, end: 20021004
  8. FIRSTCIN [Concomitant]
     Route: 042
     Dates: start: 20020921, end: 20021004
  9. MINOMYCIN [Concomitant]
     Route: 042
     Dates: start: 20020921, end: 20021004
  10. VANCOMYCIN [Concomitant]
     Route: 042
     Dates: start: 20020921, end: 20021001
  11. ZOVIRAX [Concomitant]
     Route: 042
     Dates: start: 20021006, end: 20021013
  12. GAMIMUNE N 5% [Concomitant]
     Route: 042
     Dates: start: 20020912, end: 20021120
  13. KYTRIL [Concomitant]
     Route: 042
     Dates: start: 20020913, end: 20021003
  14. BAKTAR [Concomitant]
     Route: 048
     Dates: start: 20020913, end: 20030822
  15. FUNGIZONE [Concomitant]
     Route: 048
     Dates: start: 20020913, end: 20021021
  16. POLYMYXIN B SULFATE [Concomitant]
     Route: 048
     Dates: start: 20020913, end: 20021021
  17. ZOVIRAX [Concomitant]
     Route: 048
     Dates: start: 20020913, end: 20021208
  18. URSODIOL [Concomitant]
     Route: 048
     Dates: start: 20020913, end: 20021021
  19. ALLOPURINOL [Concomitant]
     Route: 048
     Dates: start: 20020913, end: 20020918
  20. RADIOTHERAPY [Concomitant]

REACTIONS (3)
  - BRAIN NATRIURETIC PEPTIDE INCREASED [None]
  - CARDIAC FAILURE CHRONIC [None]
  - HYPERAMYLASAEMIA [None]
